FAERS Safety Report 7851998-0 (Version None)
Quarter: 2011Q4

REPORT INFORMATION
  Report Type: 
  Country: None (occurrence: None)
  Receive Date: 20111026
  Receipt Date: 20111017
  Transmission Date: 20120403
  Serious: Yes (Other)
  Sender: FDA-Public Use
  Company Number: CA-JNJFOC-20110300332

PATIENT
  Sex: Male
  Weight: 71 kg

DRUGS (13)
  1. METHOTREXATE [Suspect]
     Indication: RHEUMATOID ARTHRITIS
     Route: 048
     Dates: start: 20060918, end: 20071001
  2. PREDNISONE [Concomitant]
     Route: 048
     Dates: start: 20081216
  3. FINASTERIDE [Concomitant]
     Route: 048
     Dates: start: 20090514
  4. GOLIMUMAB [Suspect]
     Indication: RHEUMATOID ARTHRITIS
     Route: 058
     Dates: start: 20061005, end: 20101125
  5. CRESTOR [Concomitant]
     Indication: BLOOD CHOLESTEROL INCREASED
     Route: 048
     Dates: start: 20090720
  6. METAMUCIL-2 [Concomitant]
     Route: 048
     Dates: start: 20091221
  7. GOLIMUMAB [Suspect]
     Route: 058
     Dates: start: 20101125
  8. DIDROCAL [Concomitant]
     Route: 048
     Dates: start: 20010101
  9. FOLIC ACID [Concomitant]
     Route: 048
     Dates: start: 20060915
  10. SURFAK [Concomitant]
     Route: 048
     Dates: start: 20100126
  11. METHOTREXATE [Concomitant]
     Route: 048
     Dates: start: 20080609
  12. EXTRA STRENGTH TYLENOL [Concomitant]
     Route: 048
     Dates: start: 20000101
  13. HYDROCHLOROTHIAZIDE [Concomitant]
     Route: 048
     Dates: start: 20100430

REACTIONS (1)
  - GASTRIC CANCER [None]
